FAERS Safety Report 25772849 (Version 1)
Quarter: 2025Q3

REPORT INFORMATION
  Report Type: Spontaneous
  Country: US (occurrence: US)
  Receive Date: 20250908
  Receipt Date: 20250908
  Transmission Date: 20251020
  Serious: No
  Sender: ABBVIE
  Company Number: US-ABBVIE-6446447

PATIENT

DRUGS (1)
  1. RINVOQ [Suspect]
     Active Substance: UPADACITINIB
     Indication: Product used for unknown indication
     Route: 048
     Dates: start: 20250902

REACTIONS (5)
  - Neck pain [Recovering/Resolving]
  - Headache [Unknown]
  - Periostitis [Unknown]
  - Spondylitis [Unknown]
  - Impatience [Unknown]

NARRATIVE: CASE EVENT DATE: 20250901
